FAERS Safety Report 4868868-2 (Version None)
Quarter: 2005Q4

REPORT INFORMATION
  Report Type: 
  Country: None (occurrence: None)
  Receive Date: 20051229
  Receipt Date: 20021014
  Transmission Date: 20060501
  Serious: Yes (Hospitalization)
  Sender: FDA-Public Use
  Company Number: US-MERCK-0210USA01495

PATIENT
  Age: 79 Year
  Sex: Female
  Weight: 68 kg

DRUGS (2)
  1. VIOXX [Suspect]
     Route: 048
     Dates: start: 19990801
  2. NEURONTIN [Suspect]
     Route: 048
     Dates: start: 20010313

REACTIONS (20)
  - ABDOMINAL PAIN [None]
  - ANAEMIA [None]
  - ANXIETY [None]
  - BLOOD DISORDER [None]
  - DEPRESSION [None]
  - ERUCTATION [None]
  - FLATULENCE [None]
  - GASTROINTESTINAL HAEMORRHAGE [None]
  - GROIN PAIN [None]
  - HAEMORRHOIDS [None]
  - HELICOBACTER PYLORI IDENTIFICATION TEST POSITIVE [None]
  - HYPERTENSION [None]
  - INJURY [None]
  - NERVOUSNESS [None]
  - NEURALGIA [None]
  - NON-CARDIAC CHEST PAIN [None]
  - OCCULT BLOOD POSITIVE [None]
  - PNEUMONIA [None]
  - POLYTRAUMATISM [None]
  - REFLUX OESOPHAGITIS [None]
